FAERS Safety Report 19799179 (Version 1)
Quarter: 2021Q3

REPORT INFORMATION
  Report Type: Spontaneous
  Country: US (occurrence: US)
  Receive Date: 20210907
  Receipt Date: 20210907
  Transmission Date: 20211014
  Serious: Yes (Death)
  Sender: FDA-Public Use
  Company Number: US-EPIZYME, INC-2021USEPIZYME0318

PATIENT

DRUGS (1)
  1. TAZVERIK [Suspect]
     Active Substance: TAZEMETOSTAT HYDROBROMIDE
     Indication: SOFT TISSUE SARCOMA
     Dosage: 800 MG, BID
     Route: 048
     Dates: end: 20210806

REACTIONS (3)
  - Vital functions abnormal [Unknown]
  - Oxygen saturation decreased [Unknown]
  - Disease progression [Fatal]

NARRATIVE: CASE EVENT DATE: 20210806
